FAERS Safety Report 23184344 (Version 1)
Quarter: 2023Q4

REPORT INFORMATION
  Report Type: Report from Study
  Country: FR (occurrence: FR)
  Receive Date: 20231115
  Receipt Date: 20231115
  Transmission Date: 20240109
  Serious: Yes (Other)
  Sender: FDA-Public Use
  Company Number: FR-STADA-290463

PATIENT
  Age: 10 Year

DRUGS (3)
  1. VALPROIC ACID [Suspect]
     Active Substance: VALPROIC ACID
     Indication: Lennox-Gastaut syndrome
     Dosage: 800 MILLIGRAM, ONCE A DAY
     Route: 065
  2. VALPROIC ACID [Suspect]
     Active Substance: VALPROIC ACID
     Dosage: 500 MILLIGRAM, ONCE A DAY
     Route: 065
  3. CANNABIDIOL [Suspect]
     Active Substance: CANNABIDIOL
     Indication: Lennox-Gastaut syndrome
     Dosage: 100 MILLIGRAM PER MILLILETER
     Route: 048

REACTIONS (3)
  - Alanine aminotransferase increased [Unknown]
  - Aspartate aminotransferase increased [Unknown]
  - Gamma-glutamyltransferase increased [Unknown]
